FAERS Safety Report 4808924-8 (Version None)
Quarter: 2005Q4

REPORT INFORMATION
  Report Type: 
  Country: None (occurrence: None)
  Receive Date: 20051020
  Receipt Date: 20051020
  Transmission Date: 20060501
  Serious: Yes (Hospitalization)
  Sender: FDA-Public Use
  Company Number: None

PATIENT
  Sex: Female
  Weight: 49.8957 kg

DRUGS (3)
  1. DOXORUBICIN [Suspect]
     Indication: HODGKIN'S DISEASE
     Dosage: SEE IMAGE
     Route: 042
     Dates: start: 20051005, end: 20051005
  2. VINBLASTINE [Suspect]
     Dosage: SEE IMAGE
     Route: 042
     Dates: start: 20051005, end: 20051005
  3. GEMCITABINE [Suspect]
     Dosage: SEE IMAGE
     Route: 042
     Dates: start: 20051005, end: 20051005

REACTIONS (1)
  - CATHETER SITE CELLULITIS [None]
